FAERS Safety Report 5202739-7 (Version None)
Quarter: 2007Q1

REPORT INFORMATION
  Report Type: 
  Country: None (occurrence: None)
  Receive Date: 20070109
  Receipt Date: 20061220
  Transmission Date: 20070707
  Serious: Yes (Hospitalization)
  Sender: FDA-Public Use
  Company Number: FR-PFIZER INC-2007000530

PATIENT
  Sex: Male

DRUGS (5)
  1. VIRACEPT [Suspect]
     Indication: HIV TEST POSITIVE
     Dosage: TEXT:5 DOSE FORM 2 X PER DAY / 250 MG
     Dates: start: 20060914, end: 20061004
  2. COMBIVIR [Suspect]
     Dosage: TEXT:1 DOSE FORM 2 X PER DAY /
     Dates: start: 20060914, end: 20061004
  3. RETROVIR [Suspect]
     Route: 048
     Dates: start: 20061004, end: 20061117
  4. CLAMOXYL [Concomitant]
  5. RETROVIR [Concomitant]

REACTIONS (7)
  - ANAEMIA [None]
  - CAESAREAN SECTION [None]
  - DIARRHOEA [None]
  - DRUG EXPOSURE DURING PREGNANCY [None]
  - GAMMA-GLUTAMYLTRANSFERASE INCREASED [None]
  - HYPERLACTACIDAEMIA [None]
  - PREGNANCY [None]
